FAERS Safety Report 7915595-0 (Version None)
Quarter: 2011Q4

REPORT INFORMATION
  Report Type: 
  Country: None (occurrence: None)
  Receive Date: 20111115
  Receipt Date: 20110810
  Transmission Date: 20120403
  Serious: Yes (Death)
  Sender: FDA-Public Use
  Company Number: US-BRISTOL-MYERS SQUIBB COMPANY-15905789

PATIENT
  Age: 68 Year
  Sex: Female

DRUGS (2)
  1. DACARBAZINE [Suspect]
     Dosage: DACARBAZINE 6/30
     Dates: start: 20110630, end: 20110630
  2. YERVOY [Suspect]
     Indication: MALIGNANT MELANOMA
     Dosage: NO OF DOSE:1
     Dates: start: 20110706, end: 20110706

REACTIONS (1)
  - NEOPLASM MALIGNANT [None]
